FAERS Safety Report 17567748 (Version 2)
Quarter: 2021Q4

REPORT INFORMATION
  Report Type: Spontaneous
  Country: SE (occurrence: SE)
  Receive Date: 20200320
  Receipt Date: 20211216
  Transmission Date: 20220303
  Serious: Yes (Other)
  Sender: FDA-Public Use
  Company Number: SE-NOVARTISPH-NVSC2020SE079562

PATIENT
  Age: 14 Year
  Sex: Male
  Weight: 49 kg

DRUGS (7)
  1. TACROLIMUS [Suspect]
     Active Substance: TACROLIMUS
     Indication: Immunosuppressant drug therapy
     Dosage: UNK
     Route: 065
  2. TACROLIMUS [Suspect]
     Active Substance: TACROLIMUS
     Indication: Cryptogenic cirrhosis
  3. PREDNISOLONE [Suspect]
     Active Substance: PREDNISOLONE
     Indication: Immunosuppressant drug therapy
     Dosage: UNK
     Route: 065
  4. PREDNISOLONE [Suspect]
     Active Substance: PREDNISOLONE
     Indication: Cryptogenic cirrhosis
  5. LEDIPASVIR [Suspect]
     Active Substance: LEDIPASVIR
     Indication: Chronic hepatitis C
     Dosage: 1 DOSAGE FORM (PILL), QD, LEDIPASVIR: 90 MG, SOFOSBUVIR: 400 MG
     Route: 065
  6. SOFOSBUVIR [Suspect]
     Active Substance: SOFOSBUVIR
     Indication: Antiviral treatment
     Dosage: 400 MG, QD; 12 WEEKS
     Route: 065
  7. LEDIPASVIR [Suspect]
     Active Substance: LEDIPASVIR
     Indication: Antiviral treatment
     Dosage: 90 MG, QD, PILL
     Route: 065

REACTIONS (4)
  - Hepatitis C RNA increased [Recovered/Resolved]
  - Off label use [Unknown]
  - Hepatitis C [Recovered/Resolved]
  - Product use issue [Unknown]
